FAERS Safety Report 6863598-X (Version None)
Quarter: 2010Q3

REPORT INFORMATION
  Report Type: 
  Country: None (occurrence: None)
  Receive Date: 20100720
  Receipt Date: 20100712
  Transmission Date: 20110219
  Serious: Yes (Other)
  Sender: FDA-Public Use
  Company Number: RB-05674-2010

PATIENT
  Age: 56 Year
  Sex: Male

DRUGS (1)
  1. SUBOXONE [Suspect]
     Indication: PRODUCT USED FOR UNKNOWN INDICATION

REACTIONS (8)
  - ANXIETY [None]
  - CONDITION AGGRAVATED [None]
  - CONVULSION [None]
  - INSOMNIA [None]
  - LUNG NEOPLASM [None]
  - PANIC ATTACK [None]
  - RHINORRHOEA [None]
  - WITHDRAWAL SYNDROME [None]
